FAERS Safety Report 15643480 (Version 1)
Quarter: 2018Q4

REPORT INFORMATION
  Report Type: Spontaneous
  Country: US (occurrence: US)
  Receive Date: 20181121
  Receipt Date: 20181121
  Transmission Date: 20190205
  Serious: Yes (Other)
  Sender: FDA-Public Use
  Company Number: None

PATIENT
  Age: 55 Year
  Sex: Male
  Weight: 81 kg

DRUGS (10)
  1. SUBOXONE [Concomitant]
     Active Substance: BUPRENORPHINE HYDROCHLORIDE\NALOXONE HYDROCHLORIDE
  2. NORTRIPTYLINE [Concomitant]
     Active Substance: NORTRIPTYLINE
  3. AIMOVIG [Suspect]
     Active Substance: ERENUMAB-AOOE
     Indication: PROPHYLAXIS
     Dosage: ?          QUANTITY:1 INJECTION(S);OTHER FREQUENCY:1X/3 MONTHS;?
     Route: 030
     Dates: start: 20180917, end: 20180917
  4. PROBIOTIC [Concomitant]
     Active Substance: PROBIOTICS NOS
  5. SINGULAIR [Concomitant]
     Active Substance: MONTELUKAST SODIUM
  6. CRESTOR [Concomitant]
     Active Substance: ROSUVASTATIN CALCIUM
  7. MULTIVITAMIN [Concomitant]
     Active Substance: VITAMINS
  8. XYZAL [Concomitant]
     Active Substance: LEVOCETIRIZINE DIHYDROCHLORIDE
  9. PROTONIX [Concomitant]
     Active Substance: PANTOPRAZOLE SODIUM
  10. MULTI CALCIUM/MANESIUM/VIT. D [Concomitant]

REACTIONS (5)
  - Musculoskeletal pain [None]
  - Myalgia [None]
  - Pain [None]
  - Arthralgia [None]
  - Chest pain [None]

NARRATIVE: CASE EVENT DATE: 20180917
